FAERS Safety Report 4947199-6 (Version None)
Quarter: 2006Q1

REPORT INFORMATION
  Report Type: 
  Country: None (occurrence: None)
  Receive Date: 20060313
  Receipt Date: 20060228
  Transmission Date: 20060701
  Serious: Yes (Hospitalization)
  Sender: FDA-Public Use
  Company Number: 2006028682

PATIENT
  Age: 52 Year
  Sex: Female
  Weight: 73.0291 kg

DRUGS (12)
  1. SUTENT [Suspect]
     Indication: RENAL CELL CARCINOMA STAGE UNSPECIFIED
     Dosage: 37.5 MG (37.5 MG, 1 IN 1 D) ORAL
     Route: 048
     Dates: start: 20050830
  2. ALPHA LIPOIC ACID (THIOCTIC ACID) [Concomitant]
  3. CALCIUM GLUCONATE [Concomitant]
  4. FLAXSEED OIL [Concomitant]
  5. GINGER [Concomitant]
  6. MULTIVITAMIN [Concomitant]
  7. SYNTHROID (LEVOTHYROID SODIUM) [Concomitant]
  8. VITAMIN E [Concomitant]
  9. LEVAQUIN [Concomitant]
  10. PROTONIX [Concomitant]
  11. TEQUIN [Concomitant]
  12. OXYGEN [Concomitant]

REACTIONS (3)
  - PNEUMONIA [None]
  - PNEUMONITIS [None]
  - WHEEZING [None]
